FAERS Safety Report 24725391 (Version 3)
Quarter: 2025Q2

REPORT INFORMATION
  Report Type: Spontaneous
  Country: US (occurrence: US)
  Receive Date: 20241212
  Receipt Date: 20250610
  Transmission Date: 20250717
  Serious: Yes (Other)
  Sender: SANOFI AVENTIS
  Company Number: US-SA-2024SA366224

PATIENT
  Sex: Female
  Weight: 56.82 kg

DRUGS (20)
  1. DUPIXENT [Suspect]
     Active Substance: DUPILUMAB
     Indication: Dermatitis
     Dosage: 300 MG, QOW
     Route: 058
  2. WINREVAIR [Suspect]
     Active Substance: SOTATERCEPT-CSRK
  3. SODIUM CHLORIDE [Concomitant]
     Active Substance: SODIUM CHLORIDE
  4. VELETRI [Concomitant]
     Active Substance: EPOPROSTENOL
  5. OPSUMIT [Concomitant]
     Active Substance: MACITENTAN
  6. LIALDA [Concomitant]
     Active Substance: MESALAMINE
  7. HYDROXYZINE HYDROCHLORIDE [Concomitant]
     Active Substance: HYDROXYZINE HYDROCHLORIDE
  8. OXYGEN [Concomitant]
     Active Substance: OXYGEN
  9. OMEPRAZOLE [Concomitant]
     Active Substance: OMEPRAZOLE
  10. SERTRALINE HYDROCHLORIDE [Concomitant]
     Active Substance: SERTRALINE HYDROCHLORIDE
  11. TOPIRAMATE [Concomitant]
     Active Substance: TOPIRAMATE
  12. ACETAMINOPHEN [Concomitant]
     Active Substance: ACETAMINOPHEN
  13. OCREVUS [Concomitant]
     Active Substance: OCRELIZUMAB
  14. NURTEC ODT [Concomitant]
     Active Substance: RIMEGEPANT SULFATE
  15. MECLIZINE HYDROCHLORIDE [Concomitant]
     Active Substance: MECLIZINE HYDROCHLORIDE
  16. FUROSEMIDE [Concomitant]
     Active Substance: FUROSEMIDE
  17. ADEMPAS [Concomitant]
     Active Substance: RIOCIGUAT
  18. SODIUM CHLORIDE [Concomitant]
     Active Substance: SODIUM CHLORIDE
  19. VITAMINS [Concomitant]
     Active Substance: VITAMINS
  20. TETRAHYDROZOLINE HYDROCHLORIDE [Concomitant]
     Active Substance: TETRAHYDROZOLINE HYDROCHLORIDE

REACTIONS (9)
  - Crohn^s disease [Unknown]
  - Migraine [Unknown]
  - Flushing [Unknown]
  - Diarrhoea [Unknown]
  - Platelet count decreased [Unknown]
  - Infusion site discharge [Unknown]
  - Infusion site infection [Unknown]
  - Headache [Unknown]
  - Product use in unapproved indication [Unknown]
